FAERS Safety Report 15353446 (Version 1)
Quarter: 2018Q3

REPORT INFORMATION
  Report Type: Report from Study
  Country: SA (occurrence: SA)
  Receive Date: 20180905
  Receipt Date: 20180905
  Transmission Date: 20181010
  Serious: Yes (Other)
  Sender: FDA-Public Use
  Company Number: SA-MYLANLABS-2018M1065188

PATIENT

DRUGS (1)
  1. PROPRANOLOL [Suspect]
     Active Substance: PROPRANOLOL HYDROCHLORIDE
     Indication: INFANTILE HAEMANGIOMA
     Dosage: TOTAL TARGETED DOSE OF 2MG/KG/DAY IN TWO EQUAL DIVIDED DOSES; INITIATED AT 70% OF THE TARGETED DO...
     Route: 048

REACTIONS (2)
  - Bronchiolitis [Recovered/Resolved]
  - Condition aggravated [Recovered/Resolved]
